APPROVED DRUG PRODUCT: VALSARTAN AND HYDROCHLOROTHIAZIDE
Active Ingredient: HYDROCHLOROTHIAZIDE; VALSARTAN
Strength: 25MG;320MG
Dosage Form/Route: TABLET;ORAL
Application: A203026 | Product #005
Applicant: APOTEX INC
Approved: Mar 21, 2013 | RLD: No | RS: No | Type: DISCN